FAERS Safety Report 5658231-9 (Version None)
Quarter: 2008Q1

REPORT INFORMATION
  Report Type: 
  Country: None (occurrence: None)
  Receive Date: 20080310
  Receipt Date: 20071015
  Transmission Date: 20080703
  Serious: No
  Sender: FDA-Public Use
  Company Number: US-BAYER-200710218BCC

PATIENT
  Age: 80 Year
  Sex: Female
  Weight: 57 kg

DRUGS (6)
  1. ALEVE [Suspect]
     Indication: ARTHRALGIA
     Dosage: TOTAL DAILY DOSE: 440 MG  UNIT DOSE: 220 MG
     Route: 048
     Dates: start: 20070118
  2. ALEVE [Suspect]
     Dosage: TOTAL DAILY DOSE: 220 MG  UNIT DOSE: 220 MG
     Route: 048
     Dates: start: 20070119
  3. DETROL [Concomitant]
     Route: 048
  4. ALLERGY SHOTS [Concomitant]
     Route: 042
  5. ECONOPRED PLUS [Concomitant]
  6. ACULAR [Concomitant]

REACTIONS (1)
  - PAIN [None]
